FAERS Safety Report 6006390-0 (Version None)
Quarter: 2008Q4

REPORT INFORMATION
  Report Type: 
  Country: None (occurrence: None)
  Receive Date: 20081215
  Receipt Date: 20081204
  Transmission Date: 20090506
  Serious: Yes (Hospitalization)
  Sender: FDA-Public Use
  Company Number: 2008-187924-NL

PATIENT
  Age: 16 Year
  Sex: Female

DRUGS (1)
  1. ETONOGESTREL (BATCH #: 694200/ 711910) [Suspect]
     Indication: CONTRACEPTION
     Dosage: DF, SUBCUTANEOUS
     Route: 058

REACTIONS (2)
  - DRUG IMPLANT REJECTION [None]
  - IMPLANT SITE NECROSIS [None]
